FAERS Safety Report 12327944 (Version 1)
Quarter: 2016Q2

REPORT INFORMATION
  Report Type: Spontaneous
  Country: US (occurrence: US)
  Receive Date: 20160503
  Receipt Date: 20160503
  Transmission Date: 20160815
  Serious: No
  Sender: FDA-Public Use
  Company Number: US-ENDO PHARMACEUTICALS INC.-2016-001487

PATIENT
  Sex: Female

DRUGS (12)
  1. LIDOCAINE PATCH [Concomitant]
     Active Substance: LIDOCAINE
     Indication: ANKYLOSING SPONDYLITIS
  2. NAPROXEN TABLETS [Suspect]
     Active Substance: NAPROXEN
     Indication: PAIN
     Route: 065
  3. LIDOCAINE PATCH [Concomitant]
     Active Substance: LIDOCAINE
     Indication: BONE PAIN
  4. SYNTHROID [Concomitant]
     Active Substance: LEVOTHYROXINE SODIUM
     Indication: HYPOTHYROIDISM
  5. IBUPROFEN. [Concomitant]
     Active Substance: IBUPROFEN
     Indication: PRODUCT USED FOR UNKNOWN INDICATION
  6. ALEVE [Concomitant]
     Active Substance: NAPROXEN SODIUM
     Indication: PAIN
  7. RHEUMATREX [Concomitant]
     Active Substance: METHOTREXATE SODIUM
     Indication: PSORIATIC ARTHROPATHY
  8. SIMPONI [Concomitant]
     Active Substance: GOLIMUMAB
     Indication: ANKYLOSING SPONDYLITIS
  9. LIDOCAINE PATCH [Concomitant]
     Active Substance: LIDOCAINE
     Indication: PSORIATIC ARTHROPATHY
  10. SIMPONI [Concomitant]
     Active Substance: GOLIMUMAB
     Indication: PSORIATIC ARTHROPATHY
  11. DILAUDID [Concomitant]
     Active Substance: HYDROMORPHONE HYDROCHLORIDE
     Indication: PRODUCT USED FOR UNKNOWN INDICATION
  12. ZANTAC [Concomitant]
     Active Substance: RANITIDINE HYDROCHLORIDE
     Indication: ABDOMINAL PAIN UPPER

REACTIONS (2)
  - Abdominal pain upper [Unknown]
  - Dyspepsia [Unknown]
